FAERS Safety Report 9204624 (Version 1)
Quarter: 2013Q1

REPORT INFORMATION
  Report Type: Spontaneous
  Country: US (occurrence: None)
  Receive Date: 20120709
  Receipt Date: 20120709
  Transmission Date: 20140127
  Serious: No
  Sender: FDA-Public Use
  Company Number: 2012HGS-003497

PATIENT
  Age: 44 Year
  Sex: Female
  Weight: 81.65 kg

DRUGS (22)
  1. BENLYSTA [Suspect]
     Indication: SYSTEMIC LUPUS ERYTHEMATOSUS
     Dosage: 1 IN 30 D
     Route: 041
     Dates: start: 20120406
  2. PREDNISONE [Concomitant]
  3. PLAQUENIL [Concomitant]
  4. CELLCEPT [Concomitant]
  5. CYMBALTA [Concomitant]
  6. ZYRTEC [Concomitant]
  7. ALLEGRA (FEXOFENADINE HYDROCHLORIDE) (FEXOFENADINE HYDROCHLORIDE) [Concomitant]
  8. ADVAIR [Concomitant]
  9. SYNTHROID [Concomitant]
  10. EVOXAC [Concomitant]
  11. SINGULAIR [Concomitant]
  12. SOMA [Concomitant]
  13. LIDOCAINE (LIDOCAINE) (LIDOCAINE) [Concomitant]
  14. FERROUS SULFATE [Concomitant]
  15. ALBUTEROL [Concomitant]
  16. LASIX [Concomitant]
  17. K-DUR [Concomitant]
  18. ADDERALL [Concomitant]
  19. FENTORA [Concomitant]
  20. DILAUDID [Concomitant]
  21. ATARAX [Concomitant]
  22. NEURONTIN [Concomitant]

REACTIONS (4)
  - Infusion related reaction [None]
  - Hypoaesthesia oral [None]
  - Diarrhoea [None]
  - Paraesthesia oral [None]
